FAERS Safety Report 14207961 (Version 1)
Quarter: 2017Q4

REPORT INFORMATION
  Report Type: Spontaneous
  Country: FR (occurrence: FR)
  Receive Date: 20171121
  Receipt Date: 20171121
  Transmission Date: 20180321
  Serious: Yes (Hospitalization)
  Sender: FDA-Public Use
  Company Number: FR-ACCORD-061236

PATIENT
  Age: 69 Year
  Sex: Male

DRUGS (6)
  1. IRINOTECAN HOSPIRA [Suspect]
     Active Substance: IRINOTECAN
     Indication: ADENOCARCINOMA PANCREAS
     Route: 042
     Dates: start: 20170823, end: 20170921
  2. SOLU-MEDROL [Concomitant]
     Active Substance: METHYLPREDNISOLONE SODIUM SUCCINATE
  3. CALCIUM FOLINATE SANDOZ [Suspect]
     Active Substance: LEUCOVORIN CALCIUM
     Indication: ADENOCARCINOMA PANCREAS
     Route: 042
     Dates: start: 20170823, end: 20170921
  4. ATROPINE. [Concomitant]
     Active Substance: ATROPINE
  5. FLUOROURACIL ACCORD [Suspect]
     Active Substance: FLUOROURACIL
     Indication: ADENOCARCINOMA PANCREAS
     Dosage: 3800 MG AND 600 MG
     Dates: start: 20170823, end: 20170921
  6. OXALIPLATIN ACCORD [Suspect]
     Active Substance: OXALIPLATIN
     Indication: ADENOCARCINOMA PANCREAS
     Dosage: 130 MG ONCE PER CYCLE
     Route: 042
     Dates: start: 20170823, end: 20170921

REACTIONS (9)
  - Septic shock [Recovering/Resolving]
  - Neutropenic colitis [Recovering/Resolving]
  - Prerenal failure [Unknown]
  - Bacillus infection [Unknown]
  - Rectal haemorrhage [Unknown]
  - Febrile neutropenia [Recovered/Resolved]
  - Off label use [Unknown]
  - Dehydration [None]
  - Gastrointestinal toxicity [None]

NARRATIVE: CASE EVENT DATE: 20170921
